FAERS Safety Report 7094589-4 (Version None)
Quarter: 2010Q4

REPORT INFORMATION
  Report Type: 
  Country: None (occurrence: None)
  Receive Date: 20101110
  Receipt Date: 20101108
  Transmission Date: 20110411
  Serious: Yes (Death)
  Sender: FDA-Public Use
  Company Number: BR-B.I. PHARMACEUTICALS,INC./RIDGEFIELD-2010-BR-02689BR

PATIENT
  Age: 74 Year
  Sex: Male

DRUGS (2)
  1. SPIRIVA RESPIMAT [Suspect]
     Indication: RESPIRATORY FAILURE
     Dates: start: 20080101, end: 20101020
  2. MAREVAN [Concomitant]

REACTIONS (1)
  - RESPIRATORY FAILURE [None]
